FAERS Safety Report 9513118 (Version 1)
Quarter: 2013Q3

REPORT INFORMATION
  Report Type: Spontaneous
  Country: FR (occurrence: FR)
  Receive Date: 20130910
  Receipt Date: 20130910
  Transmission Date: 20140515
  Serious: Yes (Hospitalization, Disabling, Other)
  Sender: FDA-Public Use
  Company Number: FR-BAXTER-2013BAX034781

PATIENT
  Age: 69 Year
  Sex: Female

DRUGS (27)
  1. ENDOXAN 2000 MG, LYOPHILISAT POUR SOLUTION INJECTABLE [Suspect]
     Indication: MANTLE CELL LYMPHOMA
     Route: 042
     Dates: start: 20120709
  2. ENDOXAN 2000 MG, LYOPHILISAT POUR SOLUTION INJECTABLE [Suspect]
     Route: 042
     Dates: start: 20120821
  3. ENDOXAN 2000 MG, LYOPHILISAT POUR SOLUTION INJECTABLE [Suspect]
     Route: 042
     Dates: start: 20120920
  4. ENDOXAN 2000 MG, LYOPHILISAT POUR SOLUTION INJECTABLE [Suspect]
     Route: 042
     Dates: start: 20121030
  5. ENDOXAN 2000 MG, LYOPHILISAT POUR SOLUTION INJECTABLE [Suspect]
     Route: 042
     Dates: start: 20121205
  6. MABTHERA [Suspect]
     Indication: MANTLE CELL LYMPHOMA
     Route: 042
     Dates: start: 20120709
  7. MABTHERA [Suspect]
     Route: 042
     Dates: start: 20120821
  8. MABTHERA [Suspect]
     Route: 042
     Dates: start: 20120920
  9. MABTHERA [Suspect]
     Route: 042
     Dates: start: 20121030
  10. MABTHERA [Suspect]
     Route: 042
     Dates: start: 20121205
  11. DOXORUBICINE EBEWE [Suspect]
     Indication: MANTLE CELL LYMPHOMA
     Route: 042
     Dates: start: 20120709
  12. DOXORUBICINE EBEWE [Suspect]
     Route: 042
     Dates: start: 20120821
  13. DOXORUBICINE EBEWE [Suspect]
     Route: 042
     Dates: start: 20120920
  14. DOXORUBICINE EBEWE [Suspect]
     Route: 042
     Dates: start: 20121030
  15. DOXORUBICINE EBEWE [Suspect]
     Route: 042
     Dates: start: 20121205
  16. ONCOVIN [Suspect]
     Indication: MANTLE CELL LYMPHOMA
     Route: 042
     Dates: start: 20120709
  17. ONCOVIN [Suspect]
     Route: 042
     Dates: start: 20120821
  18. ONCOVIN [Suspect]
     Route: 042
     Dates: start: 20120920
  19. ONCOVIN [Suspect]
     Route: 042
     Dates: start: 20121030
  20. ONCOVIN [Suspect]
     Route: 042
     Dates: start: 20121205
  21. METHYLPREDNISOLONE [Suspect]
     Indication: MANTLE CELL LYMPHOMA
     Route: 042
     Dates: start: 20120709
  22. METHYLPREDNISOLONE [Suspect]
     Route: 042
     Dates: start: 20120821
  23. METHYLPREDNISOLONE [Suspect]
     Route: 042
     Dates: start: 20120920
  24. METHYLPREDNISOLONE [Suspect]
     Route: 042
     Dates: start: 20121030
  25. METHYLPREDNISOLONE [Suspect]
     Route: 042
     Dates: start: 20121205
  26. METHOTREXATE [Concomitant]
     Indication: PRODUCT USED FOR UNKNOWN INDICATION
     Route: 065
     Dates: start: 20130408
  27. METHOTREXATE [Concomitant]
     Route: 065
     Dates: start: 20130423

REACTIONS (2)
  - Cerebral toxoplasmosis [Recovering/Resolving]
  - Bone marrow failure [Recovered/Resolved]
